FAERS Safety Report 5977360-3 (Version None)
Quarter: 2008Q4

REPORT INFORMATION
  Report Type: 
  Country: None (occurrence: None)
  Receive Date: 20081203
  Receipt Date: 20081125
  Transmission Date: 20090506
  Serious: Yes (Disabling)
  Sender: FDA-Public Use
  Company Number: PHHY2008BR30004

PATIENT
  Age: 84 Year
  Sex: Female

DRUGS (4)
  1. EXELON [Suspect]
     Indication: DEMENTIA ALZHEIMER'S TYPE
     Dosage: 3 MG, QD
     Route: 048
     Dates: start: 20060101
  2. EQUILID [Concomitant]
     Indication: AGGRESSION
     Dosage: 1 DF, QD
     Route: 048
  3. SUSTRATE [Concomitant]
     Indication: ATRIOVENTRICULAR BLOCK
     Dosage: 3 DF, QD
     Route: 048
  4. ALENDRONATE SODIUM [Concomitant]
     Indication: OSTEOPOROSIS
     Dosage: UNK
     Route: 048
     Dates: end: 20081101

REACTIONS (2)
  - BEDRIDDEN [None]
  - DYSPHAGIA [None]
